FAERS Safety Report 8841135 (Version 2)
Quarter: 2012Q4

REPORT INFORMATION
  Report Type: 
  Country: AU (occurrence: AU)
  Receive Date: 20121016
  Receipt Date: 20121022
  Transmission Date: 20130627
  Serious: Yes (Hospitalization)
  Sender: FDA-Public Use
  Company Number: AU-AMGEN-AUSSP2012065228

PATIENT

DRUGS (3)
  1. NEULASTA [Suspect]
     Indication: NEUTROPENIA
     Dosage: 6 mg, Day 2 of cycle chemo
  2. ADRIAMYCIN                         /00330901/ [Concomitant]
  3. CYTOXAN [Concomitant]

REACTIONS (2)
  - Febrile neutropenia [Unknown]
  - Inappropriate schedule of drug administration [Unknown]
